FAERS Safety Report 20871516 (Version 1)
Quarter: 2022Q2

REPORT INFORMATION
  Report Type: Spontaneous
  Country: US (occurrence: None)
  Receive Date: 20220524
  Receipt Date: 20220524
  Transmission Date: 20220720
  Serious: Yes (Other)
  Sender: FDA-Public Use
  Company Number: None

PATIENT
  Age: 36 Year
  Sex: Female

DRUGS (1)
  1. AMBRISENTAN [Suspect]
     Active Substance: AMBRISENTAN
     Indication: Portopulmonary hypertension
     Dosage: FREQUENCY : DAILY;?
     Route: 048
     Dates: start: 20210804

REACTIONS (5)
  - Human chorionic gonadotropin abnormal [None]
  - Haematocrit abnormal [None]
  - Iron deficiency [None]
  - Heavy menstrual bleeding [None]
  - Dyspnoea [None]

NARRATIVE: CASE EVENT DATE: 20220520
